FAERS Safety Report 13777447 (Version 1)
Quarter: 2017Q3

REPORT INFORMATION
  Report Type: Spontaneous
  Country: US (occurrence: US)
  Receive Date: 20170721
  Receipt Date: 20170721
  Transmission Date: 20171127
  Serious: No
  Sender: FDA-Public Use
  Company Number: US-BAYER-2017-139245

PATIENT
  Age: 84 Year
  Sex: Female
  Weight: 59 kg

DRUGS (1)
  1. MIRALAX [Suspect]
     Active Substance: POLYETHYLENE GLYCOL 3350
     Dosage: ONE TABLESPOON TWICE A DAYUNK
     Route: 048
     Dates: start: 2012, end: 20170720

REACTIONS (2)
  - Drug ineffective [Unknown]
  - Inappropriate prescribing [Unknown]
